FAERS Safety Report 5722598-3 (Version None)
Quarter: 2008Q2

REPORT INFORMATION
  Report Type: 
  Country: None (occurrence: None)
  Receive Date: 20080429
  Receipt Date: 20070926
  Transmission Date: 20081010
  Serious: No
  Sender: FDA-Public Use
  Company Number: US-ASTRAZENECA-2007UW22584

PATIENT
  Sex: Female

DRUGS (8)
  1. NEXIUM [Suspect]
     Indication: DYSPHONIA
     Dosage: ONCE DAILY
     Route: 048
  2. NEXIUM [Suspect]
     Indication: COUGH
     Dosage: ONCE DAILY
     Route: 048
  3. NEXIUM [Suspect]
     Indication: ODYNOPHAGIA
     Dosage: ONCE DAILY
     Route: 048
  4. PLAVIX [Concomitant]
  5. TIPROA [Concomitant]
  6. SYNTHROID [Concomitant]
  7. COSOP [Concomitant]
  8. VITAMIN B-12 [Concomitant]

REACTIONS (1)
  - DRUG INEFFECTIVE [None]
